FAERS Safety Report 16928520 (Version 1)
Quarter: 2019Q4

REPORT INFORMATION
  Report Type: Spontaneous
  Country: GB (occurrence: GB)
  Receive Date: 20191017
  Receipt Date: 20191017
  Transmission Date: 20200122
  Serious: Yes (Hospitalization)
  Sender: FDA-Public Use
  Company Number: GB-JNJFOC-20191018931

PATIENT
  Age: 24 Year
  Sex: Female

DRUGS (2)
  1. CO-PROXAMOL [Suspect]
     Active Substance: ACETAMINOPHEN\PROPOXYPHENE HYDROCHLORIDE
     Indication: PRODUCT USED FOR UNKNOWN INDICATION
     Route: 048
  2. PARACETAMOL [Suspect]
     Active Substance: ACETAMINOPHEN
     Indication: PRODUCT USED FOR UNKNOWN INDICATION
     Route: 048

REACTIONS (4)
  - Toxicity to various agents [Recovered/Resolved]
  - Hypothermia [Recovered/Resolved]
  - Overdose [Recovered/Resolved]
  - Poisoning deliberate [Unknown]
